FAERS Safety Report 6618381-7 (Version None)
Quarter: 2010Q1

REPORT INFORMATION
  Report Type: 
  Country: None (occurrence: None)
  Receive Date: 20100308
  Receipt Date: 20100301
  Transmission Date: 20100710
  Serious: Yes (Hospitalization)
  Sender: FDA-Public Use
  Company Number: A0848529A

PATIENT
  Age: 60 Year
  Sex: Male

DRUGS (1)
  1. AVANDAMET [Suspect]
     Indication: DIABETES MELLITUS
     Dosage: 2MG TWICE PER DAY
     Route: 048
     Dates: start: 20060801

REACTIONS (3)
  - CARDIAC FAILURE CONGESTIVE [None]
  - FACIAL SPASM [None]
  - MUSCLE SPASMS [None]
